FAERS Safety Report 4966909-5 (Version None)
Quarter: 2006Q2

REPORT INFORMATION
  Report Type: 
  Country: None (occurrence: None)
  Receive Date: 20060407
  Receipt Date: 20060217
  Transmission Date: 20061013
  Serious: Yes (Life-Threatening, Disabling, Other)
  Sender: FDA-Public Use
  Company Number: US-MERCK-0602USA04769

PATIENT
  Age: 84 Year
  Sex: Female
  Weight: 61 kg

DRUGS (2)
  1. VYTORIN [Suspect]
     Indication: BLOOD CHOLESTEROL INCREASED
     Route: 048
     Dates: end: 20060216
  2. SYNTHROID [Concomitant]
     Indication: HYPOTHYROIDISM
     Route: 048

REACTIONS (7)
  - ASTHENIA [None]
  - BRONCHITIS [None]
  - DYSPNOEA [None]
  - JOINT STIFFNESS [None]
  - LABORATORY TEST ABNORMAL [None]
  - MYALGIA [None]
  - PAIN IN EXTREMITY [None]
